FAERS Safety Report 8167280-0 (Version None)
Quarter: 2012Q1

REPORT INFORMATION
  Report Type: 
  Country: None (occurrence: None)
  Receive Date: 20120103
  Receipt Date: 20111117
  Transmission Date: 20120608
  Serious: Yes (Hospitalization)
  Sender: FDA-Public Use
  Company Number: AE-2011-003585

PATIENT
  Age: 53 Year
  Sex: Female

DRUGS (2)
  1. INCIVEK [Suspect]
  2. PEG-INTRON [Concomitant]

REACTIONS (1)
  - THROMBOCYTOPENIA [None]
